FAERS Safety Report 4337913-5 (Version None)
Quarter: 2004Q1

REPORT INFORMATION
  Report Type: 
  Country: None (occurrence: None)
  Receive Date: 20040329
  Receipt Date: 20040129
  Transmission Date: 20041129
  Serious: No
  Sender: FDA-Public Use
  Company Number: USA040158005

PATIENT
  Age: 41 Year
  Sex: Female
  Weight: 82 kg

DRUGS (3)
  1. STRATTERA [Suspect]
     Indication: ATTENTION DEFICIT/HYPERACTIVITY DISORDER
     Dosage: 80 MG/DAY
     Dates: start: 20031201
  2. AVANDAMET [Concomitant]
  3. INSULIN [Concomitant]

REACTIONS (2)
  - FEELING ABNORMAL [None]
  - PALPITATIONS [None]
